FAERS Safety Report 8589930-7 (Version None)
Quarter: 2012Q3

REPORT INFORMATION
  Report Type: 
  Country: None (occurrence: None)
  Receive Date: 20120813
  Receipt Date: 20120802
  Transmission Date: 20120928
  Serious: Yes (Death, Other)
  Sender: FDA-Public Use
  Company Number: FR-CELGENEUS-056-21880-11031732

PATIENT

DRUGS (8)
  1. BUSULFAN [Concomitant]
     Indication: MULTIPLE MYELOMA
     Route: 065
  2. AMOXICILLIN [Concomitant]
     Indication: INFECTION PROPHYLAXIS
     Dosage: 1500 MILLIGRAM
     Route: 065
  3. FLUDARABINE PHOSPHATE [Concomitant]
     Indication: MULTIPLE MYELOMA
     Route: 065
  4. ASPIRIN [Concomitant]
     Indication: ANTICOAGULANT THERAPY
     Route: 065
  5. REVLIMID [Suspect]
     Indication: MULTIPLE MYELOMA
     Dosage: 10-25 MG
     Route: 048
  6. ANTI-LYMPHOCYTIC SERUM [Concomitant]
     Indication: MULTIPLE MYELOMA
     Route: 065
  7. VALACICLOVIR [Concomitant]
     Indication: ANTIVIRAL PROPHYLAXIS
     Dosage: 1000 MILLIGRAM
     Route: 048
  8. TRIMETHOPRIM-SULFAMETHOXAZOLE [Concomitant]
     Indication: INFECTION PROPHYLAXIS
     Route: 065

REACTIONS (14)
  - CYTOMEGALOVIRUS INFECTION [None]
  - NEUTROPENIA [None]
  - ASTHENIA [None]
  - RENAL IMPAIRMENT [None]
  - MUSCLE SPASMS [None]
  - PRURITUS [None]
  - ACUTE GRAFT VERSUS HOST DISEASE [None]
  - NEPHROPATHY TOXIC [None]
  - HERPES VIRUS INFECTION [None]
  - FATIGUE [None]
  - CEREBRAL INFARCTION [None]
  - THROMBOCYTOPENIA [None]
  - CONSTIPATION [None]
  - MULTIPLE MYELOMA [None]
